FAERS Safety Report 6810338-6 (Version None)
Quarter: 2010Q2

REPORT INFORMATION
  Report Type: 
  Country: None (occurrence: None)
  Receive Date: 20100630
  Receipt Date: 20100621
  Transmission Date: 20101027
  Serious: Yes (Other)
  Sender: FDA-Public Use
  Company Number: PHHY2010FR41148

PATIENT
  Age: 78 Year
  Sex: Male

DRUGS (1)
  1. COMTAN [Suspect]
     Dosage: UNK, UNK

REACTIONS (2)
  - ANAEMIA [None]
  - POLYP [None]
